FAERS Safety Report 16750656 (Version 1)
Quarter: 2019Q3

REPORT INFORMATION
  Report Type: Spontaneous
  Country: US (occurrence: US)
  Receive Date: 20190828
  Receipt Date: 20190828
  Transmission Date: 20191005
  Serious: Yes (Other)
  Sender: FDA-Public Use
  Company Number: US-ELI_LILLY_AND_COMPANY-US201908010484

PATIENT
  Sex: Female

DRUGS (2)
  1. CALCIUM [Concomitant]
     Active Substance: CALCIUM
     Indication: PRODUCT USED FOR UNKNOWN INDICATION
  2. HUMALOG [Suspect]
     Active Substance: INSULIN LISPRO
     Indication: TYPE 1 DIABETES MELLITUS
     Dosage: UNK UNK, UNKNOWN
     Route: 065
     Dates: start: 1987

REACTIONS (7)
  - Chronic kidney disease [Not Recovered/Not Resolved]
  - Breast calcifications [Recovering/Resolving]
  - Stress [Unknown]
  - Osteoporosis [Recovering/Resolving]
  - Blood calcium decreased [Unknown]
  - Infection parasitic [Unknown]
  - Decreased immune responsiveness [Not Recovered/Not Resolved]
